FAERS Safety Report 5488981-9 (Version None)
Quarter: 2007Q4

REPORT INFORMATION
  Report Type: 
  Country: None (occurrence: None)
  Receive Date: 20071015
  Receipt Date: 20070626
  Transmission Date: 20080405
  Serious: No
  Sender: FDA-Public Use
  Company Number: 2007SP002360

PATIENT
  Age: 77 Year
  Sex: Female
  Weight: 58.514 kg

DRUGS (3)
  1. LUNESTA [Suspect]
     Indication: INSOMNIA
     Dosage: 2 MG;1X;ORAL
     Route: 048
     Dates: start: 20070625, end: 20070625
  2. ATORVASTATIN CALCIUM [Concomitant]
  3. XANAX [Concomitant]

REACTIONS (4)
  - FEELING ABNORMAL [None]
  - HALLUCINATION, VISUAL [None]
  - NERVOUSNESS [None]
  - TREMOR [None]
